FAERS Safety Report 9912563 (Version 1)
Quarter: 2014Q1

REPORT INFORMATION
  Report Type: Spontaneous
  Country: ES (occurrence: None)
  Receive Date: 20140212
  Receipt Date: 20140212
  Transmission Date: 20141002
  Serious: Yes (Life-Threatening, Hospitalization)
  Sender: FDA-Public Use
  Company Number: VAL_02970_2014

PATIENT
  Age: 38 Year
  Sex: Female

DRUGS (1)
  1. METHERGIN [Suspect]
     Indication: ABORTION INDUCED
     Dosage: (0.25 MG, DF INTRAMUSCULAR)
     Route: 030
     Dates: start: 20110215, end: 20110215

REACTIONS (3)
  - Loss of consciousness [None]
  - Hypotension [None]
  - Respiratory failure [None]
